FAERS Safety Report 8023748-9 (Version None)
Quarter: 2012Q1

REPORT INFORMATION
  Report Type: 
  Country: None (occurrence: None)
  Receive Date: 20120103
  Receipt Date: 20120103
  Transmission Date: 20120608
  Serious: Yes (Hospitalization)
  Sender: FDA-Public Use
  Company Number: None

PATIENT
  Age: 52 Year
  Sex: Male
  Weight: 129.1 kg

DRUGS (2)
  1. CYCLOBENZAPRINE [Suspect]
     Indication: PAIN
     Dosage: 10 MG PRN PO
     Route: 048
     Dates: start: 20111007, end: 20111119
  2. LOSARTAN POTASSIUM [Suspect]
     Dosage: 100 MG EVERY DAY PO
     Route: 048
     Dates: start: 20100204, end: 20111119

REACTIONS (2)
  - URTICARIA [None]
  - ANGIOEDEMA [None]
